FAERS Safety Report 12818203 (Version 1)
Quarter: 2016Q4

REPORT INFORMATION
  Report Type: Spontaneous
  Country: US (occurrence: US)
  Receive Date: 20161006
  Receipt Date: 20161006
  Transmission Date: 20170207
  Serious: No
  Sender: FDA-Public Use
  Company Number: US-PFIZER INC-2016463010

PATIENT
  Sex: Female

DRUGS (1)
  1. ADVIL [Suspect]
     Active Substance: IBUPROFEN
     Indication: HEADACHE
     Dosage: UNK

REACTIONS (5)
  - Palpitations [Unknown]
  - Eructation [Unknown]
  - Dyspepsia [Not Recovered/Not Resolved]
  - Discomfort [Unknown]
  - Burn oesophageal [Unknown]
